FAERS Safety Report 5182471-9 (Version None)
Quarter: 2006Q4

REPORT INFORMATION
  Report Type: 
  Country: None (occurrence: None)
  Receive Date: 20061220
  Receipt Date: 20060926
  Transmission Date: 20070319
  Serious: No
  Sender: FDA-Public Use
  Company Number: US-GLAXOSMITHKLINE-A0621652A

PATIENT
  Sex: Male

DRUGS (1)
  1. COMMIT [Suspect]

REACTIONS (3)
  - HYPERSENSITIVITY [None]
  - RASH MACULAR [None]
  - THROAT IRRITATION [None]
